FAERS Safety Report 10231512 (Version 1)
Quarter: 2014Q2

REPORT INFORMATION
  Report Type: Spontaneous
  Country: US (occurrence: US)
  Receive Date: 20140611
  Receipt Date: 20140611
  Transmission Date: 20141212
  Serious: No
  Sender: FDA-Public Use
  Company Number: US-MYLANLABS-2013S1017567

PATIENT
  Age: 40 Year
  Sex: Female
  Weight: 81.65 kg

DRUGS (2)
  1. ACYCLOVIR TABLETS, USP [Suspect]
     Indication: HERPES SIMPLEX
     Route: 048
     Dates: start: 201303, end: 201305
  2. VALACYCLOVIR TABLETS [Suspect]
     Indication: HERPES SIMPLEX
     Route: 048
     Dates: start: 20130702

REACTIONS (1)
  - Alopecia [Not Recovered/Not Resolved]
